FAERS Safety Report 4315061-8 (Version None)
Quarter: 2004Q1

REPORT INFORMATION
  Report Type: 
  Country: None (occurrence: None)
  Receive Date: 20040309
  Receipt Date: 20040220
  Transmission Date: 20041129
  Serious: Yes (Death, Life-Threatening, Hospitalization)
  Sender: FDA-Public Use
  Company Number: JP_031001925

PATIENT
  Age: 83 Year
  Sex: Female
  Weight: 40 kg

DRUGS (3)
  1. GEMZAR [Suspect]
     Indication: PANCREATIC CARCINOMA
     Dosage: 1000 MG/OTHER
     Route: 050
     Dates: start: 20030526, end: 20030805
  2. NASEA (RAMOSETRON HYDROCHLORIDE) [Concomitant]
  3. METHYLPREDNISOLONE SODIUM SUCCINATE [Concomitant]

REACTIONS (6)
  - C-REACTIVE PROTEIN INCREASED [None]
  - HAEMOGLOBIN DECREASED [None]
  - ILIAC VEIN THROMBOSIS [None]
  - INFERIOR VENA CAVAL OCCLUSION [None]
  - LIVER FUNCTION TEST ABNORMAL [None]
  - WHITE BLOOD CELL COUNT DECREASED [None]
